FAERS Safety Report 14206657 (Version 1)
Quarter: 2017Q4

REPORT INFORMATION
  Report Type: Spontaneous
  Country: US (occurrence: US)
  Receive Date: 20171120
  Receipt Date: 20171120
  Transmission Date: 20180321
  Serious: No
  Sender: FDA-Public Use
  Company Number: US-ENDO PHARMACEUTICALS INC-2017-005136

PATIENT
  Sex: Male

DRUGS (1)
  1. MORPHINE SULFATE ER 30MG [Suspect]
     Active Substance: MORPHINE SULFATE
     Indication: PAIN
     Dosage: 1 DF, OD
     Route: 065
     Dates: start: 201301

REACTIONS (1)
  - Drug screen negative [Unknown]
